FAERS Safety Report 7471405-X (Version None)
Quarter: 2011Q2

REPORT INFORMATION
  Report Type: 
  Country: None (occurrence: None)
  Receive Date: 20110511
  Receipt Date: 20110329
  Transmission Date: 20111010
  Serious: Yes (Other)
  Sender: FDA-Public Use
  Company Number: US-BAYER-2011-006895

PATIENT
  Age: 17 Year
  Sex: Male

DRUGS (4)
  1. ULTRAVIST 150 [Suspect]
     Indication: ABDOMINAL PAIN
  2. ULTRAVIST 150 [Suspect]
     Indication: HERNIA
  3. ULTRAVIST 150 [Suspect]
     Indication: COMPUTERISED TOMOGRAM ABDOMEN
     Dosage: 100 ML, ONCE
     Route: 042
     Dates: start: 20101223, end: 20101223
  4. ULTRAVIST 150 [Suspect]
     Indication: ABDOMINAL PAIN LOWER

REACTIONS (4)
  - DYSPNOEA [None]
  - URTICARIA [None]
  - SNEEZING [None]
  - NAUSEA [None]
